FAERS Safety Report 7508777-3 (Version None)
Quarter: 2011Q2

REPORT INFORMATION
  Report Type: 
  Country: None (occurrence: None)
  Receive Date: 20110527
  Receipt Date: 20110207
  Transmission Date: 20111010
  Serious: No
  Sender: FDA-Public Use
  Company Number: A0912761A

PATIENT
  Age: 50 Year
  Sex: Female

DRUGS (2)
  1. ADVAIR DISKUS 100/50 [Suspect]
     Dates: start: 20091218
  2. VENTOLIN [Suspect]
     Dates: start: 20091218

REACTIONS (2)
  - BRONCHITIS [None]
  - MALAISE [None]
